FAERS Safety Report 6759304-X (Version None)
Quarter: 2010Q2

REPORT INFORMATION
  Report Type: 
  Country: None (occurrence: None)
  Receive Date: 20100607
  Receipt Date: 20100527
  Transmission Date: 20101027
  Serious: Yes (Other)
  Sender: FDA-Public Use
  Company Number: JP-PFIZER INC-2010067833

PATIENT
  Age: 11 Year
  Sex: Male

DRUGS (1)
  1. RELPAX [Suspect]
     Dosage: 20 MG, 1X/DAY
     Route: 048

REACTIONS (4)
  - DRUG PRESCRIBING ERROR [None]
  - HEADACHE [None]
  - MALAISE [None]
  - PAIN IN JAW [None]
